FAERS Safety Report 19947391 (Version 2)
Quarter: 2024Q2

REPORT INFORMATION
  Report Type: Report from Study
  Country: US (occurrence: US)
  Receive Date: 20211012
  Receipt Date: 20240416
  Transmission Date: 20240716
  Serious: Yes (Hospitalization)
  Sender: FDA-Public Use
  Company Number: US-TAKEDA-2021TUS062803

PATIENT
  Age: 61 Year
  Sex: Male
  Weight: 100 kg

DRUGS (3)
  1. IXAZOMIB [Suspect]
     Active Substance: IXAZOMIB
     Indication: Plasma cell myeloma refractory
     Dosage: UNK
     Route: 065
  2. IXAZOMIB [Suspect]
     Active Substance: IXAZOMIB
     Dosage: 4 MILLIGRAM, 1/WEEK
     Route: 048
     Dates: start: 20240313
  3. VENCLEXTA [Concomitant]
     Active Substance: VENETOCLAX
     Dosage: 100 MILLIGRAM, BID
     Route: 065
     Dates: start: 20240313

REACTIONS (4)
  - Influenza [Unknown]
  - COVID-19 [Recovering/Resolving]
  - Hair colour changes [Unknown]
  - Off label use [Unknown]

NARRATIVE: CASE EVENT DATE: 20240313
